FAERS Safety Report 8593254-1 (Version None)
Quarter: 2012Q3

REPORT INFORMATION
  Report Type: 
  Country: None (occurrence: None)
  Receive Date: 20120814
  Receipt Date: 20120806
  Transmission Date: 20120928
  Serious: Yes (Hospitalization)
  Sender: FDA-Public Use
  Company Number: US-GILEAD-2012-0058842

PATIENT
  Sex: Female

DRUGS (3)
  1. LETAIRIS [Suspect]
     Indication: PULMONARY HYPERTENSION
     Dosage: 10 MG, UNK
     Route: 048
     Dates: start: 20110912, end: 20120703
  2. COUMADIN [Concomitant]
  3. TYVASO [Suspect]
     Indication: PORTAL HYPERTENSION
     Dosage: UNK
     Dates: start: 20120612

REACTIONS (2)
  - RESPIRATORY TRACT INFECTION [None]
  - DYSPNOEA [None]
